FAERS Safety Report 6978787-3 (Version None)
Quarter: 2010Q3

REPORT INFORMATION
  Report Type: 
  Country: None (occurrence: None)
  Receive Date: 20100913
  Receipt Date: 20100903
  Transmission Date: 20110219
  Serious: Yes (Death)
  Sender: FDA-Public Use
  Company Number: ZA-SANOFI-AVENTIS-2010SA051136

PATIENT
  Age: 72 Year
  Sex: Male

DRUGS (6)
  1. LANTUS [Suspect]
     Indication: TYPE 2 DIABETES MELLITUS
     Route: 058
  2. HUMULIN R [Concomitant]
     Indication: TYPE 2 DIABETES MELLITUS
  3. METFORMIN [Concomitant]
     Indication: TYPE 2 DIABETES MELLITUS
     Route: 048
  4. GLYCOMIN [Concomitant]
     Indication: TYPE 2 DIABETES MELLITUS
  5. ANTIHYPERTENSIVES [Concomitant]
     Indication: HYPERTENSION
  6. INSULIN ACTRAPHANE [Concomitant]

REACTIONS (1)
  - DEATH [None]
